FAERS Safety Report 10933579 (Version 2)
Quarter: 2015Q2

REPORT INFORMATION
  Report Type: Spontaneous
  Country: US (occurrence: US)
  Receive Date: 20150320
  Receipt Date: 20150526
  Transmission Date: 20150821
  Serious: Yes (Hospitalization)
  Sender: FDA-Public Use
  Company Number: US-JNJFOC-20150113571

PATIENT
  Sex: Female

DRUGS (1)
  1. RISPERIDONE. [Suspect]
     Active Substance: RISPERIDONE
     Indication: SCHIZOPHRENIA
     Dosage: 2 PER DAY, UNKNOWN IF IT WAS 2 MG OR 2 TABLETS
     Route: 048

REACTIONS (2)
  - Condition aggravated [Unknown]
  - Treatment noncompliance [Unknown]
